FAERS Safety Report 9932342 (Version 1)
Quarter: 2014Q1

REPORT INFORMATION
  Report Type: Spontaneous
  Country: US (occurrence: US)
  Receive Date: 20140228
  Receipt Date: 20140228
  Transmission Date: 20141002
  Serious: No
  Sender: FDA-Public Use
  Company Number: US-ABBVIE-13P-163-1155882-00

PATIENT
  Sex: Male

DRUGS (4)
  1. ANDROGEL [Suspect]
     Indication: BLOOD TESTOSTERONE DECREASED
     Dates: start: 201304, end: 201309
  2. ANDROGEL [Suspect]
     Dosage: ONE IN THE MORNING AND ONE IN EVENING
     Dates: start: 201309
  3. FENOFIBRATE [Concomitant]
     Indication: BLOOD TRIGLYCERIDES INCREASED
  4. FLOMAX [Concomitant]
     Indication: PROSTATOMEGALY

REACTIONS (2)
  - Off label use [Unknown]
  - Blood testosterone decreased [Unknown]
